FAERS Safety Report 4765133-9 (Version None)
Quarter: 2005Q3

REPORT INFORMATION
  Report Type: 
  Country: None (occurrence: None)
  Receive Date: 20050906
  Receipt Date: 20050822
  Transmission Date: 20060218
  Serious: Yes (Other)
  Sender: FDA-Public Use
  Company Number: USA0508104862

PATIENT
  Age: 73 Year
  Sex: Male
  Weight: 55 kg

DRUGS (2)
  1. GEMZAR [Suspect]
     Indication: BLADDER CANCER
     Dosage: UNK
     Route: 065
     Dates: start: 20050701
  2. CARBOPLATIN [Concomitant]

REACTIONS (3)
  - DEEP VEIN THROMBOSIS [None]
  - PAIN IN EXTREMITY [None]
  - THROMBOCYTOPENIA [None]
